FAERS Safety Report 4845778-8 (Version None)
Quarter: 2005Q4

REPORT INFORMATION
  Report Type: 
  Country: None (occurrence: None)
  Receive Date: 20051201
  Receipt Date: 20020523
  Transmission Date: 20060501
  Serious: Yes (Death)
  Sender: FDA-Public Use
  Company Number: L05-SWE-04316-07

PATIENT
  Age: 56 Year
  Sex: Female

DRUGS (9)
  1. CITALOPRAM HYDROBROMIDE [Suspect]
  2. PROPRANOLOL [Concomitant]
  3. CLOMIPRAMINE [Concomitant]
  4. PARACETAMOL [Concomitant]
  5. DEXTROPROPOXYPHENE [Concomitant]
  6. ZOPICLONE [Concomitant]
  7. AMITRIPTYLINE HCL [Concomitant]
  8. NORTRIPTYLINE HCL [Concomitant]
  9. CHLORZOXAZONE [Concomitant]

REACTIONS (1)
  - INTENTIONAL OVERDOSE [None]
